FAERS Safety Report 7756357-7 (Version None)
Quarter: 2011Q3

REPORT INFORMATION
  Report Type: 
  Country: None (occurrence: None)
  Receive Date: 20110916
  Receipt Date: 20110915
  Transmission Date: 20111222
  Serious: Yes (Death, Other)
  Sender: FDA-Public Use
  Company Number: JP-BAYER-2011-086670

PATIENT
  Age: 68 Year
  Sex: Male
  Weight: 49 kg

DRUGS (2)
  1. SORAFENIB (RAF KINASE INHIBITOR) [Suspect]
     Dosage: 400 MG, DAILY
     Dates: start: 20110104, end: 20110609
  2. SORAFENIB (RAF KINASE INHIBITOR) [Suspect]
     Indication: HEPATIC NEOPLASM MALIGNANT
     Dosage: 800 MG, DAILY
     Route: 048
     Dates: start: 20101207, end: 20101228

REACTIONS (4)
  - HEPATIC NEOPLASM MALIGNANT [None]
  - NEUTROPHIL COUNT DECREASED [None]
  - PORTAL VEIN THROMBOSIS [None]
  - PLATELET COUNT DECREASED [None]
